FAERS Safety Report 20354978 (Version 5)
Quarter: 2024Q1

REPORT INFORMATION
  Report Type: Report from Study
  Country: CA (occurrence: CA)
  Receive Date: 20220120
  Receipt Date: 20240131
  Transmission Date: 20240410
  Serious: Yes (Hospitalization, Other)
  Sender: FDA-Public Use
  Company Number: CA-CELLTRION INC.-2022CA000381

PATIENT

DRUGS (34)
  1. RITUXIMAB [Suspect]
     Active Substance: RITUXIMAB
     Indication: Juvenile idiopathic arthritis
     Dosage: 1000.0 MILLIGRAM
     Route: 041
  2. RITUXIMAB [Suspect]
     Active Substance: RITUXIMAB
     Dosage: 1000.0 MILLIGRAM
     Route: 041
  3. ACTEMRA [Suspect]
     Active Substance: TOCILIZUMAB
     Indication: Uveitis
     Route: 065
  4. ACTEMRA [Suspect]
     Active Substance: TOCILIZUMAB
     Indication: Juvenile idiopathic arthritis
  5. ACTEMRA [Suspect]
     Active Substance: TOCILIZUMAB
     Indication: Uveitis
     Dosage: 360.0 MILLIGRAM, CYCLICAL
     Route: 042
  6. ACTEMRA [Suspect]
     Active Substance: TOCILIZUMAB
     Indication: Juvenile idiopathic arthritis
  7. MYCOPHENOLATE MOFETIL [Suspect]
     Active Substance: MYCOPHENOLATE MOFETIL
     Indication: Product used for unknown indication
     Route: 065
  8. MYCOPHENOLATE MOFETIL [Suspect]
     Active Substance: MYCOPHENOLATE MOFETIL
     Indication: Product used for unknown indication
     Route: 065
  9. PREDNISONE [Suspect]
     Active Substance: PREDNISONE
     Indication: Product used for unknown indication
     Dosage: 7.5 MILLIGRAM
     Route: 065
  10. ACCUTANE [Concomitant]
     Active Substance: ISOTRETINOIN
  11. ACETAMINOPHEN [Concomitant]
     Active Substance: ACETAMINOPHEN
     Indication: Premedication
     Dosage: 650 MG
     Route: 048
  12. ACETAZOLAMIDE [Concomitant]
     Active Substance: ACETAZOLAMIDE
  13. ACETAZOLAMIDE [Concomitant]
     Active Substance: ACETAZOLAMIDE
  14. ARAVA [Concomitant]
     Active Substance: LEFLUNOMIDE
     Dosage: UNK
  15. AZOPT [Concomitant]
     Active Substance: BRINZOLAMIDE
     Route: 065
  16. AZOPT [Concomitant]
     Active Substance: BRINZOLAMIDE
     Route: 065
  17. BENADRYL [Concomitant]
     Active Substance: DIPHENHYDRAMINE HYDROCHLORIDE
     Indication: Premedication
     Dosage: 50.0 MILLIGRAM
     Route: 048
  18. CANNABIDIOL [Concomitant]
     Active Substance: CANNABIDIOL
  19. DEXAMFETAMINE HYDROCHLORIDE [Concomitant]
  20. DUREZOL [Concomitant]
     Active Substance: DIFLUPREDNATE
  21. FLUOROMETHOLONE [Concomitant]
     Active Substance: FLUOROMETHOLONE
  22. GABAPENTIN [Concomitant]
     Active Substance: GABAPENTIN
  23. GABAPENTIN [Concomitant]
     Active Substance: GABAPENTIN
     Dosage: 400 MG
     Route: 065
  24. LEFLUNOMIDE [Concomitant]
     Active Substance: LEFLUNOMIDE
  25. MELOXICAM [Concomitant]
     Active Substance: MELOXICAM
     Dosage: UNK
  26. NORTRIPTYLINE [Concomitant]
     Active Substance: NORTRIPTYLINE
  27. NORTRIPTYLINE [Concomitant]
     Active Substance: NORTRIPTYLINE
     Dosage: 400 MG
     Route: 065
  28. PAROXETINE HYDROCHLORIDE [Concomitant]
     Active Substance: PAROXETINE HYDROCHLORIDE\PAROXETINE HYDROCHLORIDE ANHYDROUS
  29. PILOCARPINE [Concomitant]
     Active Substance: PILOCARPINE
     Dosage: 2.0 PERCENT, 3 EVERY 1 DAYS
     Route: 065
  30. SOLU-MEDROL [Concomitant]
     Active Substance: METHYLPREDNISOLONE SODIUM SUCCINATE
     Indication: Premedication
     Dosage: 50.0 MILLIGRAM
     Route: 042
  31. TIMOLOL MALEATE\TRAVOPROST [Concomitant]
     Active Substance: TIMOLOL MALEATE\TRAVOPROST
  32. TYLENOL [Concomitant]
     Active Substance: ACETAMINOPHEN
     Indication: Premedication
     Dosage: 650.0 MILLIGRAM
     Route: 048
  33. VENLAFAXINE [Concomitant]
     Active Substance: VENLAFAXINE HYDROCHLORIDE
  34. VYVANSE [Concomitant]
     Active Substance: LISDEXAMFETAMINE DIMESYLATE

REACTIONS (19)
  - Aphthous ulcer [Not Recovered/Not Resolved]
  - Cataract [Not Recovered/Not Resolved]
  - Oral pain [Not Recovered/Not Resolved]
  - Uveitis [Not Recovered/Not Resolved]
  - Eye disorder [Not Recovered/Not Resolved]
  - Glaucoma [Not Recovered/Not Resolved]
  - Abdominal discomfort [Not Recovered/Not Resolved]
  - Dry eye [Not Recovered/Not Resolved]
  - Acne [Not Recovered/Not Resolved]
  - Depression [Not Recovered/Not Resolved]
  - Meningitis [Not Recovered/Not Resolved]
  - Heart rate increased [Not Recovered/Not Resolved]
  - Encephalitis [Not Recovered/Not Resolved]
  - Joint swelling [Not Recovered/Not Resolved]
  - Arthralgia [Not Recovered/Not Resolved]
  - Mouth ulceration [Not Recovered/Not Resolved]
  - Drug ineffective [Not Recovered/Not Resolved]
  - Off label use [Not Recovered/Not Resolved]
  - Intentional product use issue [Unknown]
